FAERS Safety Report 18528916 (Version 10)
Quarter: 2024Q2

REPORT INFORMATION
  Report Type: Spontaneous
  Country: US (occurrence: US)
  Receive Date: 20201120
  Receipt Date: 20240618
  Transmission Date: 20240716
  Serious: Yes (Hospitalization, Other)
  Sender: FDA-Public Use
  Company Number: US-PFIZER INC-2018037123

PATIENT
  Age: 70 Year
  Sex: Female

DRUGS (1)
  1. XELJANZ XR [Suspect]
     Active Substance: TOFACITINIB CITRATE
     Dosage: 11 MG

REACTIONS (12)
  - Pneumonia [Unknown]
  - Urinary tract infection [Unknown]
  - Atrial fibrillation [Unknown]
  - Anxiety [Unknown]
  - Depression [Unknown]
  - Confusional state [Unknown]
  - Seasonal allergy [Unknown]
  - Condition aggravated [Unknown]
  - Joint swelling [Unknown]
  - Fatigue [Unknown]
  - Stress [Unknown]
  - Product prescribing error [Unknown]
